FAERS Safety Report 4701244-1 (Version None)
Quarter: 2005Q2

REPORT INFORMATION
  Report Type: 
  Country: None (occurrence: None)
  Receive Date: 20050628
  Receipt Date: 20050617
  Transmission Date: 20051028
  Serious: Yes (Other)
  Sender: FDA-Public Use
  Company Number: US-MERCK-0506USA02911

PATIENT
  Sex: Female

DRUGS (1)
  1. TIMOPTIC [Suspect]
     Route: 047

REACTIONS (6)
  - EYE IRRITATION [None]
  - GLAUCOMA [None]
  - HIP FRACTURE [None]
  - OFF LABEL USE [None]
  - PHARMACEUTICAL PRODUCT COMPLAINT [None]
  - RETINAL DETACHMENT [None]
